FAERS Safety Report 5491567-3 (Version None)
Quarter: 2007Q4

REPORT INFORMATION
  Report Type: 
  Country: None (occurrence: None)
  Receive Date: 20071018
  Receipt Date: 20071018
  Transmission Date: 20080405
  Serious: Yes (Life-Threatening)
  Sender: FDA-Public Use
  Company Number: None

PATIENT
  Age: 43 Year
  Sex: Female
  Weight: 47 kg

DRUGS (12)
  1. LINEZOLID [Suspect]
     Indication: ENTEROCOCCAL INFECTION
     Dosage: 600 MG IV Q 12 HOURS
     Route: 042
     Dates: start: 20070816, end: 20070823
  2. METRONIDAZOLE [Concomitant]
  3. HYDROXYCHLOROQUINE SULFATE [Concomitant]
  4. EPOETIN [Concomitant]
  5. METOPROLOL [Concomitant]
  6. OXYCODONE HCL [Concomitant]
  7. GABAPENTIN [Concomitant]
  8. BISACODYL [Concomitant]
  9. WARFARIN SODIUM [Concomitant]
  10. DIPHENHYDRAMINE HCL [Concomitant]
  11. APAP TAB [Concomitant]
  12. ENALAPRIL MALEATE [Concomitant]

REACTIONS (2)
  - IMPAIRED HEALING [None]
  - PLATELET COUNT DECREASED [None]
